FAERS Safety Report 9349973 (Version 1)
Quarter: 2013Q2

REPORT INFORMATION
  Report Type: Report from Study
  Country: US (occurrence: US)
  Receive Date: 20130614
  Receipt Date: 20130614
  Transmission Date: 20140414
  Serious: Yes (Death)
  Sender: FDA-Public Use
  Company Number: PHEH2013US012814

PATIENT
  Sex: Female

DRUGS (1)
  1. GLEEVEC [Suspect]
     Dosage: 600 MG, ONCE DAILY
     Route: 048
     Dates: start: 20120221

REACTIONS (2)
  - Staphylococcal infection [Fatal]
  - Dyspnoea [Fatal]
